FAERS Safety Report 6618583-X (Version None)
Quarter: 2010Q1

REPORT INFORMATION
  Report Type: 
  Country: None (occurrence: None)
  Receive Date: 20100308
  Receipt Date: 20100219
  Transmission Date: 20100710
  Serious: Yes (Hospitalization)
  Sender: FDA-Public Use
  Company Number: GXKR2010BR02564

PATIENT
  Age: 70 Year
  Sex: Male
  Weight: 75 kg

DRUGS (6)
  1. RIFAMPICIN [Suspect]
     Indication: LEPROSY
     Route: 048
  2. CLOFAZIMINE (NGX) [Suspect]
     Indication: LEPROSY
     Route: 048
  3. DAPSONE [Suspect]
     Indication: LEPROSY
     Route: 048
  4. AAS [Concomitant]
     Indication: ANTICOAGULANT THERAPY
     Dosage: 1 DF/DAY
     Route: 048
  5. VITAMIN A [Concomitant]
     Dosage: 1 DF, BID
     Route: 065
  6. VITAMIN B COMPLEX CAP [Concomitant]
     Dosage: 1 DF, BID
     Route: 065

REACTIONS (5)
  - ANAEMIA [None]
  - ASTHENIA [None]
  - HEART SOUNDS ABNORMAL [None]
  - HYPOAESTHESIA [None]
  - RENAL DISORDER [None]
